FAERS Safety Report 8219312-9 (Version None)
Quarter: 2012Q1

REPORT INFORMATION
  Report Type: 
  Country: None (occurrence: None)
  Receive Date: 20120319
  Receipt Date: 20120312
  Transmission Date: 20120608
  Serious: Yes (Hospitalization, Other)
  Sender: FDA-Public Use
  Company Number: US-JNJFOC-20120301124

PATIENT
  Sex: Female

DRUGS (2)
  1. CHANTIX [Suspect]
     Indication: SMOKING CESSATION THERAPY
     Route: 065
  2. NICOTROL [Suspect]
     Indication: SMOKING CESSATION THERAPY
     Route: 065
     Dates: start: 20080101

REACTIONS (7)
  - TOBACCO USER [None]
  - ABNORMAL DREAMS [None]
  - VOMITING [None]
  - THROAT CANCER [None]
  - LIMB DISCOMFORT [None]
  - SURGERY [None]
  - DIVERTICULITIS [None]
